FAERS Safety Report 25302658 (Version 3)
Quarter: 2025Q3

REPORT INFORMATION
  Report Type: Spontaneous
  Country: EU (occurrence: EU)
  Receive Date: 20250512
  Receipt Date: 20250811
  Transmission Date: 20251020
  Serious: Yes (Other)
  Sender: NOVARTIS
  Company Number: EU-002147023-NVSC2025CZ075071

PATIENT
  Age: 1 Year
  Sex: Female

DRUGS (1)
  1. ZOLGENSMA [Suspect]
     Active Substance: ONASEMNOGENE ABEPARVOVEC-XIOI
     Indication: Product used for unknown indication
     Route: 042
     Dates: start: 20210218, end: 20210218

REACTIONS (3)
  - Diabetes mellitus [Unknown]
  - Hyperglycaemia [Unknown]
  - Coagulopathy [Unknown]
